FAERS Safety Report 10187102 (Version 1)
Quarter: 2014Q2

REPORT INFORMATION
  Report Type: Spontaneous
  Country: DE (occurrence: DE)
  Receive Date: 20140522
  Receipt Date: 20140522
  Transmission Date: 20141212
  Serious: Yes (Other)
  Sender: FDA-Public Use
  Company Number: DE-ASTRAZENECA-2014SE33486

PATIENT
  Age: 56 Year
  Sex: Female

DRUGS (16)
  1. SEROQUEL [Suspect]
     Route: 048
     Dates: start: 20131105, end: 20131128
  2. SEROQUEL [Interacting]
     Route: 048
     Dates: start: 20131129, end: 20131217
  3. SEROQUEL [Interacting]
     Route: 048
     Dates: start: 20131218, end: 20131220
  4. SEROQUEL [Interacting]
     Route: 048
     Dates: start: 20131221, end: 20131229
  5. SEROQUEL [Interacting]
     Route: 048
     Dates: start: 20131230
  6. ERGENYL [Interacting]
     Route: 048
     Dates: end: 20131025
  7. ERGENYL [Interacting]
     Route: 048
     Dates: start: 20131026, end: 20131029
  8. ERGENYL [Interacting]
     Route: 048
     Dates: start: 20131030, end: 20131104
  9. ERGENYL [Interacting]
     Route: 048
     Dates: start: 20131105
  10. VOLTAREN [Concomitant]
     Route: 048
     Dates: start: 20131120
  11. PROPRANONOL [Concomitant]
     Dates: start: 20131116
  12. PANTOZOL [Concomitant]
     Route: 048
     Dates: start: 20131120, end: 20131220
  13. PANTOZOL [Concomitant]
     Route: 048
     Dates: start: 20131221
  14. DOMINAL [Concomitant]
     Route: 048
     Dates: start: 20131030, end: 20131213
  15. MAGNESIUM [Concomitant]
     Route: 048
     Dates: start: 20131019, end: 20131220
  16. CLEXANE [Concomitant]

REACTIONS (2)
  - Drug interaction [Unknown]
  - Oedema peripheral [Recovering/Resolving]
